FAERS Safety Report 6165243-8 (Version None)
Quarter: 2009Q2

REPORT INFORMATION
  Report Type: 
  Country: None (occurrence: None)
  Receive Date: 20090423
  Receipt Date: 20090416
  Transmission Date: 20091009
  Serious: Yes (Disabling)
  Sender: FDA-Public Use
  Company Number: B0571183A

PATIENT
  Sex: Female

DRUGS (1)
  1. ALLI [Suspect]
     Indication: DRUG USE FOR UNKNOWN INDICATION
     Dosage: 60MG THREE TIMES PER DAY
     Route: 048

REACTIONS (3)
  - ABDOMINAL DISCOMFORT [None]
  - DEFAECATION URGENCY [None]
  - STEATORRHOEA [None]
